FAERS Safety Report 7978366-5 (Version None)
Quarter: 2011Q4

REPORT INFORMATION
  Report Type: 
  Country: None (occurrence: None)
  Receive Date: 20111212
  Receipt Date: 20111130
  Transmission Date: 20120403
  Serious: Yes (Other)
  Sender: FDA-Public Use
  Company Number: CIP11002254

PATIENT
  Age: 70 Year
  Sex: Female

DRUGS (25)
  1. ACTONEL [Suspect]
     Indication: OSTEOPOROSIS
     Dosage: 35 MG ONCE A WEEK, ORAL
     Route: 048
     Dates: start: 20030101, end: 20090101
  2. ACTONEL [Suspect]
     Indication: OSTEOPOROSIS
     Dosage: 35 MG ONCE A WEEK, ORAL
     Route: 048
     Dates: start: 20101101, end: 20110901
  3. ACTONEL [Suspect]
     Indication: OSTEOPOROSIS
     Dosage: 35 MG ONCE A WEEK, ORAL
     Route: 048
     Dates: start: 20090601, end: 20100901
  4. MIACALCIN [Concomitant]
  5. BUTALBITAL ACETAMINOPHEN AND CAFFEINE [Concomitant]
  6. CENTRUM SILVER (ASCORBIC ACID, CALCIUM, MINERALS NOS, RETINOL, TOCOPHE [Concomitant]
  7. ALLEGRA [Concomitant]
  8. COENZYME Q10 [Concomitant]
  9. FISH OIL [Concomitant]
  10. FLONASE [Concomitant]
  11. BONIVA [Concomitant]
     Indication: OSTEOPOROSIS
     Dosage: ORAL
     Route: 048
     Dates: start: 20090101, end: 20090601
  12. BUSPAR [Concomitant]
  13. VITAMIN D [Concomitant]
  14. ALL OTHER THERAPEUTIC PRODUCTS [Concomitant]
  15. ACIDOPHILUS (LACTOBACILLUS ACIDOPHILUS) [Concomitant]
  16. FORTEO [Concomitant]
  17. DOXEPIN [Concomitant]
  18. CITRACAL (CALCIUM CITRATE) [Concomitant]
  19. RANITIDINE [Concomitant]
  20. HYDROCHLOROTHIAZIDE [Concomitant]
  21. LORAZEPAM [Concomitant]
  22. BIOTIN [Concomitant]
  23. ASPIRIN [Concomitant]
  24. QUINAPRIL [Concomitant]
  25. COSAMIN DS (ASCORBIC ACID MANGANESE, CHONDROITIN SULFATE SODIUM, GLUCO [Concomitant]

REACTIONS (9)
  - FEMUR FRACTURE [None]
  - GAIT DISTURBANCE [None]
  - LOWER LIMB FRACTURE [None]
  - FALL [None]
  - ABDOMINAL PAIN UPPER [None]
  - STRESS FRACTURE [None]
  - PAIN IN EXTREMITY [None]
  - CONDITION AGGRAVATED [None]
  - MYALGIA [None]
